FAERS Safety Report 8755986 (Version 3)
Quarter: 2013Q1

REPORT INFORMATION
  Report Type: Spontaneous
  Country: US (occurrence: None)
  Receive Date: 20120814
  Receipt Date: 20121107
  Transmission Date: 20140127
  Serious: Yes (Hospitalization)
  Sender: FDA-Public Use
  Company Number: 137635

PATIENT
  Age: 64 Year
  Sex: Female
  Weight: 52 kg

DRUGS (1)
  1. LEUCOVORIN CALCIUM [Suspect]
     Indication: COLORECTAL CANCER METASTATIC
     Dosage: 400MG/M2 INTRAVENOUSLY ON DAY ONE OF EACH 14 DAY CYCLE?
     Route: 042
     Dates: start: 20120503, end: 20120613

REACTIONS (2)
  - Cementoplasty [None]
  - Spinal fracture [None]
